FAERS Safety Report 7788804-9 (Version None)
Quarter: 2011Q3

REPORT INFORMATION
  Report Type: 
  Country: None (occurrence: None)
  Receive Date: 20110930
  Receipt Date: 20110921
  Transmission Date: 20111222
  Serious: Yes (Death)
  Sender: FDA-Public Use
  Company Number: AT-ABBOTT-11P-009-0858331-00

PATIENT
  Age: 72 Year
  Sex: Male

DRUGS (1)
  1. LEUPROLIDE ACETATE [Suspect]
     Indication: PROSTATE CANCER
     Route: 058
     Dates: start: 20100401, end: 20110501

REACTIONS (3)
  - METASTASES TO BONE [None]
  - CACHEXIA [None]
  - GENERAL PHYSICAL HEALTH DETERIORATION [None]
